FAERS Safety Report 22188184 (Version 1)
Quarter: 2023Q2

REPORT INFORMATION
  Report Type: Report from Study
  Country: US (occurrence: US)
  Receive Date: 20230408
  Receipt Date: 20230408
  Transmission Date: 20230722
  Serious: Yes (Other)
  Sender: FDA-Public Use
  Company Number: US-002147023-NVSC2023US077504

PATIENT
  Sex: Female
  Weight: 52.154 kg

DRUGS (2)
  1. PREDNISONE [Suspect]
     Active Substance: PREDNISONE
     Indication: Lupus nephritis
     Dosage: 80 MG, QD
     Route: 048
  2. PREDNISONE [Suspect]
     Active Substance: PREDNISONE
     Indication: Systemic lupus erythematosus
     Dosage: 60 MG, QOD
     Route: 048

REACTIONS (11)
  - Dermatitis bullous [Unknown]
  - Systemic lupus erythematosus [Unknown]
  - Adverse drug reaction [Unknown]
  - Fatigue [Unknown]
  - Blister [Unknown]
  - Blood glucose increased [Recovering/Resolving]
  - Brain fog [Unknown]
  - Memory impairment [Unknown]
  - Deformity [Unknown]
  - Pollakiuria [Unknown]
  - Arthralgia [Unknown]
